FAERS Safety Report 24144264 (Version 1)
Quarter: 2024Q3

REPORT INFORMATION
  Report Type: Spontaneous
  Country: GB (occurrence: GB)
  Receive Date: 20240728
  Receipt Date: 20240728
  Transmission Date: 20241017
  Serious: Yes (Life-Threatening, Other)
  Sender: DEXCEL
  Company Number: None

PATIENT
  Age: 73 Year
  Sex: Female

DRUGS (2)
  1. DATSCAN [Suspect]
     Active Substance: IODINE\IOFLUPANE I-123
     Indication: Parkinsonism
     Dates: start: 202109, end: 202109
  2. VENLAFAXINE [Suspect]
     Active Substance: VENLAFAXINE HYDROCHLORIDE
     Indication: Depression
     Dosage: 300MG XL DAILY
     Dates: start: 201907

REACTIONS (2)
  - Drug interaction [Not Recovered/Not Resolved]
  - False positive radioisotope investigation result [Unknown]

NARRATIVE: CASE EVENT DATE: 20210901
